FAERS Safety Report 9320162 (Version 2)
Quarter: 2013Q4

REPORT INFORMATION
  Report Type: Spontaneous
  Country: US (occurrence: US)
  Receive Date: 20130530
  Receipt Date: 20131107
  Transmission Date: 20140711
  Serious: Yes (Death, Hospitalization, Other)
  Sender: FDA-Public Use
  Company Number: US-B.I. PHARMACEUTICALS,INC./RIDGEFIELD-2013-BI-14913BP

PATIENT
  Sex: Female
  Weight: 81.8 kg

DRUGS (12)
  1. PRADAXA [Suspect]
     Indication: ATRIAL FIBRILLATION
     Dosage: 300 MG
     Route: 048
     Dates: start: 20110706, end: 20110710
  2. POTASSIUM [Concomitant]
     Dosage: 20 MEQ
     Route: 048
  3. GLIPIZIDE [Concomitant]
     Dosage: 5 MG
     Route: 048
  4. CATAPRES [Concomitant]
     Dosage: 0.2 MG
     Route: 048
  5. LASIX [Concomitant]
     Dosage: 40 MG
     Route: 048
  6. BIDIL [Concomitant]
     Route: 048
  7. CALCITRIOL [Concomitant]
     Dosage: 0.25 MG
     Route: 048
  8. LABETALOL [Concomitant]
     Dosage: 200 MG
     Route: 048
  9. PROCARDIA XL [Concomitant]
     Dosage: 90 MG
     Route: 048
  10. DIOVAN [Concomitant]
     Dosage: 320 MG
     Route: 048
  11. PERCOCET [Concomitant]
     Route: 048
  12. SPIRONOLACTONE [Concomitant]
     Dosage: 25 MG
     Route: 048

REACTIONS (6)
  - Upper gastrointestinal haemorrhage [Fatal]
  - Multi-organ failure [Fatal]
  - Renal failure acute [Unknown]
  - Anaemia [Unknown]
  - Coagulopathy [Unknown]
  - Haematuria [Unknown]
